FAERS Safety Report 5524118-5 (Version None)
Quarter: 2007Q4

REPORT INFORMATION
  Report Type: 
  Country: None (occurrence: None)
  Receive Date: 20071121
  Receipt Date: 20071115
  Transmission Date: 20080405
  Serious: Yes (Death, Hospitalization)
  Sender: FDA-Public Use
  Company Number: VE-MERCK-0711VEN00001

PATIENT
  Age: 6 Year
  Sex: Male

DRUGS (1)
  1. PRIMAXIN [Suspect]
     Indication: PSOAS ABSCESS
     Route: 065

REACTIONS (3)
  - DRUG INEFFECTIVE [None]
  - PSOAS ABSCESS [None]
  - SEPTIC SHOCK [None]
